FAERS Safety Report 19817254 (Version 2)
Quarter: 2021Q4

REPORT INFORMATION
  Report Type: Spontaneous
  Country: US (occurrence: US)
  Receive Date: 20210910
  Receipt Date: 20211207
  Transmission Date: 20220303
  Serious: No
  Sender: FDA-Public Use
  Company Number: US-MYLANLABS-2021M1058614

PATIENT
  Age: 77 Year
  Sex: Female
  Weight: 82 kg

DRUGS (2)
  1. EPINEPHRINE [Suspect]
     Active Substance: EPINEPHRINE
     Indication: Allergy to arthropod bite
     Dosage: UNK
     Route: 030
     Dates: start: 20210831, end: 20210831
  2. EPINEPHRINE [Suspect]
     Active Substance: EPINEPHRINE
     Dosage: 2ND INJECTION
     Route: 030
     Dates: start: 20210901, end: 20210901

REACTIONS (2)
  - Device failure [Unknown]
  - Therapeutic product effect decreased [Not Recovered/Not Resolved]

NARRATIVE: CASE EVENT DATE: 20210831
